FAERS Safety Report 6701620-1 (Version None)
Quarter: 2010Q2

REPORT INFORMATION
  Report Type: 
  Country: None (occurrence: None)
  Receive Date: 20100429
  Receipt Date: 20100420
  Transmission Date: 20101027
  Serious: Yes (Life-Threatening, Hospitalization)
  Sender: FDA-Public Use
  Company Number: US-MYLANLABS-2010S1004679

PATIENT
  Age: 19 Year
  Sex: Male
  Weight: 55.34 kg

DRUGS (1)
  1. AMNESTEEM [Suspect]
     Indication: ACNE CYSTIC
     Route: 048
     Dates: start: 20091201, end: 20100201

REACTIONS (2)
  - APPENDICITIS [None]
  - CROHN'S DISEASE [None]
